FAERS Safety Report 7824285-4 (Version None)
Quarter: 2011Q4

REPORT INFORMATION
  Report Type: 
  Country: None (occurrence: None)
  Receive Date: 20111019
  Receipt Date: 20111017
  Transmission Date: 20120403
  Serious: Yes (Other)
  Sender: FDA-Public Use
  Company Number: US-PFIZER INC-2011249281

PATIENT
  Sex: Female

DRUGS (2)
  1. CHANTIX [Suspect]
     Dosage: 1 MG, 2X/DAY
     Route: 048
     Dates: start: 20110101, end: 20111015
  2. CHANTIX [Suspect]
     Indication: SMOKING CESSATION THERAPY
     Dosage: 0.5 MG, 1X/DAY
     Route: 048
     Dates: start: 20110601, end: 20110101

REACTIONS (10)
  - DYSPNOEA [None]
  - MIGRAINE WITH AURA [None]
  - FATIGUE [None]
  - HYPERHIDROSIS [None]
  - WEIGHT INCREASED [None]
  - VISUAL IMPAIRMENT [None]
  - VISION BLURRED [None]
  - MALAISE [None]
  - FUNGAL INFECTION [None]
  - FEELING ABNORMAL [None]
